FAERS Safety Report 25545329 (Version 1)
Quarter: 2025Q3

REPORT INFORMATION
  Report Type: Spontaneous
  Country: JP (occurrence: JP)
  Receive Date: 20250711
  Receipt Date: 20250711
  Transmission Date: 20251021
  Serious: Yes (Death)
  Sender: EISAI
  Company Number: JP-Eisai-EC-2025-193120

PATIENT
  Age: 63 Year
  Sex: Male

DRUGS (4)
  1. LENVIMA [Suspect]
     Active Substance: LENVATINIB
     Indication: Renal cell carcinoma
     Dates: start: 20240703
  2. LENVIMA [Suspect]
     Active Substance: LENVATINIB
  3. LENVIMA [Suspect]
     Active Substance: LENVATINIB
     Dates: start: 2025, end: 20250220
  4. KEYTRUDA [Concomitant]
     Active Substance: PEMBROLIZUMAB
     Indication: Renal cell carcinoma
     Dates: start: 20240703, end: 20250131

REACTIONS (1)
  - Malignant neoplasm progression [Fatal]

NARRATIVE: CASE EVENT DATE: 20250201
